FAERS Safety Report 18611789 (Version 2)
Quarter: 2020Q4

REPORT INFORMATION
  Report Type: Spontaneous
  Country: US (occurrence: US)
  Receive Date: 20201214
  Receipt Date: 20201221
  Transmission Date: 20210114
  Serious: No
  Sender: FDA-Public Use
  Company Number: US-PFIZER INC-2020485764

PATIENT
  Age: 60 Year
  Sex: Female

DRUGS (2)
  1. IBRANCE [Suspect]
     Active Substance: PALBOCICLIB
     Dosage: 125 MG, DAILY (ONE TAB DAILY)
     Dates: start: 20200826
  2. IBRANCE [Suspect]
     Active Substance: PALBOCICLIB
     Indication: BREAST CANCER FEMALE
     Dosage: 125 MG, DAILY (ONE TAB DAILY)
     Dates: start: 20200727

REACTIONS (3)
  - Urinary tract infection [Unknown]
  - Infection [Unknown]
  - Oral disorder [Unknown]

NARRATIVE: CASE EVENT DATE: 2020
